FAERS Safety Report 16151500 (Version 1)
Quarter: 2019Q2

REPORT INFORMATION
  Report Type: Report from Study
  Country: US (occurrence: US)
  Receive Date: 20190403
  Receipt Date: 20190403
  Transmission Date: 20190711
  Serious: Yes (Other)
  Sender: FDA-Public Use
  Company Number: US-ASTRAZENECA-2019SE48047

PATIENT
  Age: 41 Year
  Sex: Female

DRUGS (6)
  1. TENOFOVIR [Concomitant]
     Active Substance: TENOFOVIR
  2. LOPINAVIR/RITONAVIR [Interacting]
     Active Substance: LOPINAVIR\RITONAVIR
     Dosage: 200/50 MG TWICE DAILY
  3. QUETIAPINE. [Suspect]
     Active Substance: QUETIAPINE
     Route: 048
  4. PAROXETINE. [Suspect]
     Active Substance: PAROXETINE
  5. EMTRICITABINE [Concomitant]
     Active Substance: EMTRICITABINE
  6. QUETIAPINE. [Interacting]
     Active Substance: QUETIAPINE
     Dosage: DOSE INCREASED
     Route: 048

REACTIONS (3)
  - Sedation [Not Recovered/Not Resolved]
  - Dizziness [Not Recovered/Not Resolved]
  - Drug interaction [Unknown]
